FAERS Safety Report 8022138-2 (Version None)
Quarter: 2012Q1

REPORT INFORMATION
  Report Type: 
  Country: None (occurrence: None)
  Receive Date: 20120104
  Receipt Date: 20111222
  Transmission Date: 20120608
  Serious: Yes (Hospitalization, Disabling)
  Sender: FDA-Public Use
  Company Number: DE-UCBSA-048362

PATIENT
  Sex: Male

DRUGS (2)
  1. KEPPRA [Suspect]
     Dates: start: 20110601, end: 20110801
  2. KEPPRA [Suspect]
     Dosage: 250MG IN THE MORNING AND 250MG IN THE EVENING
     Route: 048
     Dates: start: 20110801

REACTIONS (7)
  - BEDRIDDEN [None]
  - GRAND MAL CONVULSION [None]
  - LOSS OF CONSCIOUSNESS [None]
  - CARDIAC PACEMAKER INSERTION [None]
  - WEIGHT DECREASED [None]
  - SPEECH DISORDER [None]
  - DYSPHAGIA [None]
